FAERS Safety Report 25263594 (Version 2)
Quarter: 2025Q2

REPORT INFORMATION
  Report Type: Spontaneous
  Country: US (occurrence: US)
  Receive Date: 20250502
  Receipt Date: 20250506
  Transmission Date: 20250717
  Serious: Yes (Other)
  Sender: PFIZER
  Company Number: US-PFIZER INC-202500091279

PATIENT
  Sex: Male

DRUGS (4)
  1. BRAFTOVI [Suspect]
     Active Substance: ENCORAFENIB
     Indication: Malignant melanoma
  2. BRAFTOVI [Suspect]
     Active Substance: ENCORAFENIB
     Indication: Gastrointestinal disorder
  3. MEKTOVI [Suspect]
     Active Substance: BINIMETINIB
     Indication: Malignant melanoma
  4. MEKTOVI [Suspect]
     Active Substance: BINIMETINIB
     Indication: Gastrointestinal disorder

REACTIONS (1)
  - Impaired gastric emptying [Unknown]
